FAERS Safety Report 17374378 (Version 1)
Quarter: 2020Q1

REPORT INFORMATION
  Report Type: Spontaneous
  Country: US (occurrence: US)
  Receive Date: 20200206
  Receipt Date: 20200206
  Transmission Date: 20200409
  Serious: No
  Sender: FDA-Public Use
  Company Number: US-GLENMARK PHARMACEUTICALS-2019GMK044575

PATIENT

DRUGS (1)
  1. AZELAIC ACID GEL, 15% [Suspect]
     Active Substance: AZELAIC ACID
     Indication: ACNE
     Dosage: UNK, AM (ONCE A DAY IN THE MORNING)
     Route: 061

REACTIONS (2)
  - Product substitution issue [Unknown]
  - Application site pain [Not Recovered/Not Resolved]
